FAERS Safety Report 8603927 (Version 2)
Quarter: 2014Q1

REPORT INFORMATION
  Report Type: Spontaneous
  Country: US (occurrence: None)
  Receive Date: 20120323
  Receipt Date: 20130305
  Transmission Date: 20141002
  Serious: Yes (Other)
  Sender: FDA-Public Use
  Company Number: 163-21880-10080825

PATIENT
  Age: 64 Year
  Sex: Male

DRUGS (4)
  1. REVLIMID [Suspect]
     Indication: MYELODYSPLASTIC SYNDROME
     Dosage: 10 MG, DAILY X 28 DAYS, PO
     Route: 048
     Dates: start: 201005, end: 201007
  2. REVLIMID [Suspect]
     Indication: REFRACTORY ANAEMIA WITH RINGED SIDEROBLASTS
     Dosage: 10 MG, DAILY X 28 DAYS, PO
     Route: 048
     Dates: start: 201005, end: 201007
  3. REVLIMID [Suspect]
     Dosage: 10 MG, DAILY X 28 DAYS, PO
     Route: 048
     Dates: start: 201005, end: 201007
  4. EXJADE [Suspect]
     Indication: IRON OVERLOAD
     Dosage: 2 TAB, BID, PO
     Route: 048
     Dates: start: 20091203

REACTIONS (5)
  - Disease progression [None]
  - Neuropathy peripheral [None]
  - Drug ineffective [None]
  - Full blood count decreased [None]
  - Myelodysplastic syndrome [None]
